FAERS Safety Report 7054482 (Version 5)
Quarter: 2013Q3

REPORT INFORMATION
  Report Type: Spontaneous
  Country: US (occurrence: US)
  Receive Date: 20070711
  Receipt Date: 20130816
  Transmission Date: 20140515
  Serious: Yes (Hospitalization, Other)
  Sender: FDA-Public Use
  Company Number: US-BIOGENIDEC-2007BI014036

PATIENT
  Age: 60 Year
  Sex: Female

DRUGS (2)
  1. AVONEX [Suspect]
     Indication: MULTIPLE SCLEROSIS
     Route: 030
     Dates: start: 20060419, end: 200705
  2. AVONEX [Suspect]
     Indication: MULTIPLE SCLEROSIS
     Route: 030
     Dates: start: 200706, end: 20130308

REACTIONS (5)
  - Breast cancer recurrent [Recovered/Resolved]
  - Post procedural infection [Not Recovered/Not Resolved]
  - Neoplasm malignant [Recovered/Resolved]
  - Transient ischaemic attack [Recovered/Resolved]
  - Influenza like illness [Recovered/Resolved]
